FAERS Safety Report 8282861-1 (Version None)
Quarter: 2012Q2

REPORT INFORMATION
  Report Type: 
  Country: None (occurrence: None)
  Receive Date: 20120413
  Receipt Date: 20120409
  Transmission Date: 20120825
  Serious: Yes (Other)
  Sender: FDA-Public Use
  Company Number: BR-PFIZER INC-2012088033

PATIENT
  Sex: Male

DRUGS (4)
  1. LOVAZA [Concomitant]
     Dosage: UNK
  2. ALPRAZOLAM [Suspect]
     Dosage: 0.5 MG, 1X/DAY
     Route: 048
     Dates: start: 20100101
  3. ALPRAZOLAM [Suspect]
     Dosage: 2 MG A DAY
     Route: 048
  4. ALPRAZOLAM [Suspect]
     Indication: ANXIETY
     Dosage: UNK
     Route: 048
     Dates: start: 20100101

REACTIONS (2)
  - MAJOR DEPRESSION [None]
  - RESTLESS LEGS SYNDROME [None]
